FAERS Safety Report 10284709 (Version 1)
Quarter: 2014Q3

REPORT INFORMATION
  Report Type: Spontaneous
  Country: US (occurrence: None)
  Receive Date: 20140702
  Receipt Date: 20140702
  Transmission Date: 20150326
  Serious: Yes (Other)
  Sender: FDA-Public Use
  Company Number: None

PATIENT
  Age: 57 Year
  Sex: Female
  Weight: 63.5 kg

DRUGS (1)
  1. DYSPORT [Suspect]
     Active Substance: ABOBOTULINUMTOXINA
     Indication: DRUG THERAPY
     Dosage: TOTAL 55 UNITS, ONCE ON 6/24/2014, INTO THE MUSCLE?
     Dates: start: 20140624

REACTIONS (12)
  - Blepharospasm [None]
  - Skin tightness [None]
  - Rash [None]
  - Sleep disorder [None]
  - Chest discomfort [None]
  - Discomfort [None]
  - Somnolence [None]
  - Nausea [None]
  - Dysphonia [None]
  - Muscle disorder [None]
  - Erythema [None]
  - Paraesthesia [None]

NARRATIVE: CASE EVENT DATE: 20140630
